FAERS Safety Report 10270180 (Version 1)
Quarter: 2014Q2

REPORT INFORMATION
  Report Type: Spontaneous
  Country: US (occurrence: None)
  Receive Date: 20140626
  Receipt Date: 20140626
  Transmission Date: 20141212
  Serious: Yes (Disabling, Other)
  Sender: FDA-Public Use
  Company Number: None

PATIENT
  Age: 52 Year
  Sex: Female
  Weight: 127.01 kg

DRUGS (11)
  1. DIVALPROEX [Suspect]
     Indication: BIPOLAR DISORDER
     Dosage: 3 TABLETS AT BED TIME.
     Route: 048
     Dates: start: 1998
  2. LEVOTHYROXINE [Concomitant]
  3. TENORMIN [Concomitant]
  4. COUMADIN [Concomitant]
  5. DEPAKOTE [Concomitant]
  6. RISPERIDONE [Concomitant]
  7. SIMVASTATIN [Concomitant]
  8. MEFLOXICAM [Concomitant]
  9. OXYBUTIN [Concomitant]
  10. MELATONIN [Concomitant]
  11. ADVAIR [Concomitant]

REACTIONS (3)
  - Tremor [None]
  - Dyskinesia [None]
  - Emotional distress [None]
